FAERS Safety Report 18716053 (Version 1)
Quarter: 2021Q1

REPORT INFORMATION
  Report Type: Other
  Country: US (occurrence: US)
  Receive Date: 20210108
  Receipt Date: 20210108
  Transmission Date: 20210419
  Serious: Yes (Other)
  Sender: FDA-Public Use
  Company Number: US-ROCHE-2743793

PATIENT
  Sex: Male

DRUGS (2)
  1. XELODA [Suspect]
     Active Substance: CAPECITABINE
     Indication: CARCINOID TUMOUR
     Dosage: TAKE 3 TABLET(S) BY MOUTH TWICE A DAY 2 WEEK(S) ON, 2 WEEK(S) OFF
     Route: 048
  2. XELODA [Suspect]
     Active Substance: CAPECITABINE
     Dosage: TAKE 1 TABLET BY MOUTH TWICE A DAY 2 WEEK(S) ON, 2 WEEK(S) OFF
     Route: 048

REACTIONS (3)
  - Eye disorder [Recovered/Resolved]
  - Intentional product use issue [Unknown]
  - Off label use [Unknown]
